FAERS Safety Report 16856391 (Version 3)
Quarter: 2019Q4

REPORT INFORMATION
  Report Type: Spontaneous
  Country: JP (occurrence: JP)
  Receive Date: 20190926
  Receipt Date: 20191105
  Transmission Date: 20200122
  Serious: Yes (Hospitalization, Other)
  Sender: FDA-Public Use
  Company Number: JP-PFIZER INC-2019407357

PATIENT
  Age: 89 Year
  Sex: Female

DRUGS (1)
  1. SELARA 25MG [Suspect]
     Active Substance: EPLERENONE
     Dosage: UNK

REACTIONS (3)
  - Sepsis [Recovered/Resolved]
  - Multiple organ dysfunction syndrome [Recovered/Resolved]
  - Biliary tract infection [Recovered/Resolved]

NARRATIVE: CASE EVENT DATE: 20180227
